FAERS Safety Report 20096735 (Version 2)
Quarter: 2022Q2

REPORT INFORMATION
  Report Type: Spontaneous
  Country: JP (occurrence: JP)
  Receive Date: 20211122
  Receipt Date: 20220413
  Transmission Date: 20220721
  Serious: Yes (Other)
  Sender: FDA-Public Use
  Company Number: JP-TAKEDA-2021TJP118458

PATIENT
  Age: 77 Year
  Sex: Male

DRUGS (2)
  1. CABOMETYX [Suspect]
     Active Substance: CABOZANTINIB S-MALATE
     Indication: Hepatocellular carcinoma
     Dosage: 40 MG
     Route: 048
     Dates: start: 20210301
  2. TECENTRIQ [Suspect]
     Active Substance: ATEZOLIZUMAB
     Indication: Product used for unknown indication
     Dosage: UNK
     Route: 065

REACTIONS (8)
  - Adrenocortical insufficiency acute [Unknown]
  - Hypothyroidism [Unknown]
  - Hepatocellular carcinoma [Unknown]
  - Disease progression [Unknown]
  - Malaise [Unknown]
  - Palmar-plantar erythrodysaesthesia syndrome [Unknown]
  - Protein urine present [Unknown]
  - Diarrhoea [Unknown]

NARRATIVE: CASE EVENT DATE: 20210321
